FAERS Safety Report 4983638-2 (Version None)
Quarter: 2006Q1

REPORT INFORMATION
  Report Type: 
  Country: None (occurrence: None)
  Receive Date: 20060227
  Receipt Date: 20050515
  Transmission Date: 20060701
  Serious: Yes (Disabling)
  Sender: FDA-Public Use
  Company Number: WAES 0505USA01645

PATIENT
  Age: 79 Year
  Sex: Male

DRUGS (7)
  1. ZOCOR [Suspect]
     Indication: HYPERCHOLESTEROLAEMIA
     Dosage: 40 MG DAILY PO
     Route: 048
     Dates: end: 20050506
  2. ZOCOR [Suspect]
     Indication: LIPIDS
     Dosage: 40 MG DAILY PO
     Route: 048
     Dates: end: 20050506
  3. ACTOS [Concomitant]
  4. DIOVAN HCT [Concomitant]
  5. GLUCOPHAGE [Concomitant]
  6. PLAVIX [Concomitant]
  7. ASPIRIN [Concomitant]

REACTIONS (1)
  - RHABDOMYOLYSIS [None]
